FAERS Safety Report 8198295-4 (Version None)
Quarter: 2012Q1

REPORT INFORMATION
  Report Type: 
  Country: None (occurrence: None)
  Receive Date: 20120309
  Receipt Date: 20120302
  Transmission Date: 20120608
  Serious: Yes (Hospitalization, Disabling, Other)
  Sender: FDA-Public Use
  Company Number: US-MERCK-1104USA02224

PATIENT
  Age: 49 Year
  Sex: Female
  Weight: 75 kg

DRUGS (2)
  1. FOSAMAX [Suspect]
     Indication: OSTEOPOROSIS
     Route: 048
     Dates: start: 20030115, end: 20101001
  2. FOSAMAX [Suspect]
     Route: 048

REACTIONS (43)
  - ACUTE RESPIRATORY FAILURE [None]
  - DRUG HYPERSENSITIVITY [None]
  - MUSCULOSKELETAL PAIN [None]
  - INSOMNIA [None]
  - IMPAIRED HEALING [None]
  - ANXIETY [None]
  - FRACTURE DELAYED UNION [None]
  - CELLULITIS [None]
  - HEADACHE [None]
  - FOOT FRACTURE [None]
  - ARTHRITIS [None]
  - CHRONIC OBSTRUCTIVE PULMONARY DISEASE [None]
  - PNEUMONIA [None]
  - SPINAL COLUMN STENOSIS [None]
  - RIB FRACTURE [None]
  - JOINT SWELLING [None]
  - ANGINA PECTORIS [None]
  - SUICIDAL IDEATION [None]
  - ARTHROPATHY [None]
  - BODY MASS INDEX INCREASED [None]
  - ANAEMIA [None]
  - BLOOD CHOLESTEROL INCREASED [None]
  - PAIN IN EXTREMITY [None]
  - FALL [None]
  - TENOSYNOVITIS [None]
  - ARTHRALGIA [None]
  - HAEMATOMA [None]
  - DEPRESSION [None]
  - CONSTIPATION [None]
  - ARTERIOSCLEROSIS CORONARY ARTERY [None]
  - SEROMA [None]
  - OSTEOARTHRITIS [None]
  - FRACTURE NONUNION [None]
  - HYPERCHOLESTEROLAEMIA [None]
  - DEVICE FAILURE [None]
  - INTERVERTEBRAL DISC DEGENERATION [None]
  - TENDONITIS [None]
  - SPINAL COMPRESSION FRACTURE [None]
  - CHEST PAIN [None]
  - FEMUR FRACTURE [None]
  - HYPERTENSION [None]
  - TOOTH DISORDER [None]
  - GASTROOESOPHAGEAL REFLUX DISEASE [None]
